FAERS Safety Report 7004184-0 (Version None)
Quarter: 2010Q3

REPORT INFORMATION
  Report Type: 
  Country: None (occurrence: None)
  Receive Date: 20100920
  Receipt Date: 20100219
  Transmission Date: 20110219
  Serious: No
  Sender: FDA-Public Use
  Company Number: US-WYE-H13768810

PATIENT
  Sex: Male

DRUGS (2)
  1. PRISTIQ [Suspect]
     Indication: DEPRESSION
     Dosage: 50 MG, FREQUENCY UNKNOWN
     Route: 048
     Dates: start: 20090101, end: 20100201
  2. PRISTIQ [Suspect]
     Dosage: 100 MG, FREQUENCY UNKNOWN
     Route: 048
     Dates: start: 20100201

REACTIONS (2)
  - DIZZINESS [None]
  - NAUSEA [None]
